FAERS Safety Report 8431268-2 (Version None)
Quarter: 2012Q2

REPORT INFORMATION
  Report Type: 
  Country: None (occurrence: None)
  Receive Date: 20120613
  Receipt Date: 20120604
  Transmission Date: 20120825
  Serious: Yes (Hospitalization)
  Sender: FDA-Public Use
  Company Number: CN-BRISTOL-MYERS SQUIBB COMPANY-16658734

PATIENT
  Age: 84 Year
  Sex: Male

DRUGS (3)
  1. INSULIN [Suspect]
     Indication: TYPE 2 DIABETES MELLITUS
  2. ONGLYZA [Suspect]
     Indication: TYPE 2 DIABETES MELLITUS
     Dosage: 1 DF : 1TAB
     Route: 048
  3. ACARBOSE [Suspect]
     Indication: TYPE 2 DIABETES MELLITUS

REACTIONS (2)
  - DIARRHOEA [None]
  - DEHYDRATION [None]
